FAERS Safety Report 10430241 (Version 1)
Quarter: 2014Q3

REPORT INFORMATION
  Report Type: Spontaneous
  Country: US (occurrence: US)
  Receive Date: 20140904
  Receipt Date: 20140904
  Transmission Date: 20150326
  Serious: No
  Sender: FDA-Public Use
  Company Number: US-ASTRAZENECA-2014SE64472

PATIENT
  Age: 61 Year
  Sex: Female
  Weight: 70.8 kg

DRUGS (4)
  1. MEDROL DOSE PACK [Concomitant]
     Active Substance: METHYLPREDNISOLONE
     Indication: ASTHMA
     Dosage: 4 MG
     Route: 048
     Dates: start: 20140719, end: 20140724
  2. SEMPREX D [Concomitant]
     Active Substance: ACRIVASTINE\PSEUDOEPHEDRINE HYDROCHLORIDE
     Indication: ANTIALLERGIC THERAPY
     Dosage: 2 TO 3 A DAY
     Route: 048
  3. SYMBICORT [Suspect]
     Active Substance: BUDESONIDE\FORMOTEROL FUMARATE DIHYDRATE
     Indication: ASTHMA
     Dosage: 2 PUFFS BID 160/4.5
     Route: 055
     Dates: start: 20140718
  4. SEMPREX D [Concomitant]
     Active Substance: ACRIVASTINE\PSEUDOEPHEDRINE HYDROCHLORIDE
     Indication: NASAL DECONGESTION THERAPY
     Dosage: 2 TO 3 A DAY
     Route: 048

REACTIONS (3)
  - Heart rate increased [Unknown]
  - Intentional product misuse [Unknown]
  - Candida infection [Recovering/Resolving]

NARRATIVE: CASE EVENT DATE: 201407
